FAERS Safety Report 11330143 (Version 1)
Quarter: 2015Q3

REPORT INFORMATION
  Report Type: Spontaneous
  Country: US (occurrence: None)
  Receive Date: 20150730
  Receipt Date: 20150730
  Transmission Date: 20151125
  Serious: No
  Sender: FDA-Public Use
  Company Number: None

PATIENT
  Age: 51 Year
  Sex: Female
  Weight: 81.65 kg

DRUGS (1)
  1. BENADRYL [Suspect]
     Active Substance: DIPHENHYDRAMINE HYDROCHLORIDE
     Indication: SNEEZING
     Dates: start: 20150728, end: 20150728

REACTIONS (7)
  - Lip disorder [None]
  - Polyuria [None]
  - Lip swelling [None]
  - Insomnia [None]
  - Headache [None]
  - Pruritus [None]
  - Psychomotor hyperactivity [None]

NARRATIVE: CASE EVENT DATE: 20150728
